FAERS Safety Report 21587418 (Version 1)
Quarter: 2022Q4

REPORT INFORMATION
  Report Type: Spontaneous
  Country: US (occurrence: US)
  Receive Date: 20221114
  Receipt Date: 20221114
  Transmission Date: 20230113
  Serious: Yes (Hospitalization, Other)
  Sender: FDA-Public Use
  Company Number: US-Vifor (International) Inc.-VIT-2022-07715

PATIENT
  Age: 57 Year
  Sex: Male
  Weight: 77.2 kg

DRUGS (1)
  1. MIRCERA [Suspect]
     Active Substance: METHOXY POLYETHYLENE GLYCOL-EPOETIN BETA
     Indication: Anaemia
     Route: 042
     Dates: start: 20220923, end: 20220923

REACTIONS (7)
  - Drug hypersensitivity [Unknown]
  - Blood pressure decreased [Unknown]
  - Loss of consciousness [Recovered/Resolved]
  - Pulse abnormal [Unknown]
  - Nausea [Unknown]
  - Movement disorder [Unknown]
  - Grip strength decreased [Unknown]

NARRATIVE: CASE EVENT DATE: 20220923
